FAERS Safety Report 16938642 (Version 1)
Quarter: 2019Q4

REPORT INFORMATION
  Report Type: Spontaneous
  Country: US (occurrence: US)
  Receive Date: 20190828
  Receipt Date: 20190828
  Transmission Date: 20200122
  Serious: Yes (Life-Threatening, Hospitalization)
  Sender: FDA-Public Use
  Company Number: None

PATIENT
  Age: 66 Year
  Sex: Male
  Weight: 86.18 kg

DRUGS (13)
  1. FLECAINIDE [Concomitant]
     Active Substance: FLECAINIDE
  2. LISINIPRIL [Concomitant]
     Active Substance: LISINOPRIL
  3. LEVAALBUTERAL [Concomitant]
  4. EXCEDRIN MIGRAINE [Concomitant]
     Active Substance: ACETAMINOPHEN\ASPIRIN\CAFFEINE
  5. AMNEAL/IMPAX/ADENACLICK EPINEPHERINE INJECTOR [Suspect]
     Active Substance: EPINEPHRINE
     Indication: ANAPHYLACTIC REACTION
     Dates: start: 2015
  6. ALEVE [Concomitant]
     Active Substance: NAPROXEN SODIUM
  7. EPIPEN [Concomitant]
     Active Substance: EPINEPHRINE
  8. DILTIAZEM. [Concomitant]
     Active Substance: DILTIAZEM
  9. AMNEAL/IMPAX/ADENACLICK EPINEPHERINE INJECTOR [Suspect]
     Active Substance: EPINEPHRINE
     Indication: ASTHMA
     Dates: start: 2015
  10. DIPHENHYDRAMINE HCL [Concomitant]
     Active Substance: DIPHENHYDRAMINE HYDROCHLORIDE
  11. MULTI-VITAMIN [Concomitant]
     Active Substance: .ALPHA.-TOCOPHEROL ACETATE, DL-\ASCORBIC ACID\CYANOCOBALAMIN\FLUORIDE ION\FOLIC ACID\NIACIN\PYRIDOXINE\RIBOFLAVIN\THIAMINE\VITAMIN A\VITAMIN D
  12. MONTELUKAST [Concomitant]
     Active Substance: MONTELUKAST SODIUM
  13. CETERIZINE HCL [Concomitant]

REACTIONS (3)
  - Needle issue [None]
  - Drug ineffective [None]
  - Drug dose omission by device [None]

NARRATIVE: CASE EVENT DATE: 20190707
